FAERS Safety Report 7567888-7 (Version None)
Quarter: 2011Q2

REPORT INFORMATION
  Report Type: 
  Country: None (occurrence: None)
  Receive Date: 20110623
  Receipt Date: 20110616
  Transmission Date: 20111010
  Serious: Yes (Other)
  Sender: FDA-Public Use
  Company Number: BR-AMGEN-BRACT2011031368

PATIENT
  Age: 81 Year
  Sex: Female

DRUGS (1)
  1. DENOSUMAB [Suspect]
     Indication: METASTASES TO BONE
     Dosage: UNK UNK, QMO
     Route: 058
     Dates: start: 20090820

REACTIONS (1)
  - OSTEONECROSIS [None]
